FAERS Safety Report 7825734-8 (Version None)
Quarter: 2011Q4

REPORT INFORMATION
  Report Type: 
  Country: None (occurrence: None)
  Receive Date: 20111019
  Receipt Date: 20111006
  Transmission Date: 20120403
  Serious: Yes (Other)
  Sender: FDA-Public Use
  Company Number: PHFR2011GB03906

PATIENT
  Sex: Male
  Weight: 74.4 kg

DRUGS (5)
  1. ILARIS [Suspect]
     Dosage: 300 MG / 8WEEKLY
     Route: 058
     Dates: start: 20101001
  2. IBUPROFEN [Concomitant]
     Indication: ANALGESIC THERAPY
     Dosage: 400 MG, PRN
     Route: 048
  3. COLCHICINE [Concomitant]
     Dosage: 1.5 MG, QD
     Route: 065
  4. ILARIS [Suspect]
     Indication: CRYOPYRIN ASSOCIATED PERIODIC SYNDROME
     Dosage: 150 MG /8 WEEKLY
     Route: 058
     Dates: start: 20091001, end: 20101001
  5. ASPIRIN [Concomitant]
     Indication: ANALGESIC THERAPY
     Dosage: 75 MG, PRN
     Route: 048

REACTIONS (4)
  - CELLULITIS [None]
  - RASH [None]
  - PANNICULITIS [None]
  - OEDEMA PERIPHERAL [None]
